FAERS Safety Report 10072247 (Version 1)
Quarter: 2014Q2

REPORT INFORMATION
  Report Type: Spontaneous
  Country: CA (occurrence: CA)
  Receive Date: 20140411
  Receipt Date: 20140411
  Transmission Date: 20141212
  Serious: Yes (Hospitalization, Disabling)
  Sender: FDA-Public Use
  Company Number: CA-009507513-1404CAN002322

PATIENT
  Age: 77 Year
  Sex: Male
  Weight: 90 kg

DRUGS (8)
  1. REMERON [Suspect]
     Dosage: 1.0 DOSAGE FORMS, 1 EVERY 1 DAY(S)
     Route: 048
  2. KEPPRA [Suspect]
     Dosage: 1.0 DOSAGE FORMS, 2 EVERY 1 DAY(S)
     Route: 048
  3. CENTRUM FORTE [Concomitant]
     Dosage: UNK
     Route: 048
  4. DILANTIN [Concomitant]
     Dosage: UNK
     Route: 065
  5. DOCUSATE SODIUM [Concomitant]
     Dosage: UNK
     Route: 065
  6. PANTOPRAZOLE [Concomitant]
     Dosage: UNK
     Route: 065
  7. PHENOBARBITAL [Concomitant]
     Dosage: UNK
     Route: 065
  8. SENNOSIDES [Concomitant]
     Dosage: UNK
     Route: 065

REACTIONS (3)
  - Activities of daily living impaired [Not Recovered/Not Resolved]
  - Gait disturbance [Not Recovered/Not Resolved]
  - Feeling abnormal [Not Recovered/Not Resolved]
